FAERS Safety Report 8090732-9 (Version None)
Quarter: 2012Q1

REPORT INFORMATION
  Report Type: 
  Country: None (occurrence: None)
  Receive Date: 20120124
  Receipt Date: 20120111
  Transmission Date: 20120608
  Serious: Yes (Hospitalization)
  Sender: FDA-Public Use
  Company Number: JP-2011-10143

PATIENT
  Age: 61 Year
  Sex: Male
  Weight: 74.9 kg

DRUGS (15)
  1. MONILAC (LACTULOSE) [Concomitant]
  2. KETOPROFEN [Concomitant]
  3. BIO-THREE (BACILLUS MESENTERICUS, CLOSTRIDIUM BUTYRICUM, STREPTOCOCCUS [Concomitant]
  4. ALDACTONE [Suspect]
     Indication: ASCITES
     Dosage: 25 MG MILLIGRAM(S), BID, ORAL
     Route: 048
     Dates: start: 20050525
  5. LASIX [Concomitant]
  6. HIRUDOID (HEPARINOID) [Concomitant]
  7. OPC-41061 (OPC-41061) TABLET [Suspect]
     Indication: HEPATIC CIRRHOSIS
     Dosage: 7.5 MG MILLIGRAM(S), DAILY DOSE, ORAL
     Route: 048
     Dates: start: 20110120, end: 20110122
  8. LIVACT (ISOLEUCINE, LEUCINE, VALINE) [Concomitant]
  9. CARVEDILOL [Concomitant]
  10. AMOBAN (ZOPICLONE) [Concomitant]
  11. NOVOLIN 50R (INSULIN HUMAN, INSULIN HUMAN INJECTION, ISOPHANE) [Concomitant]
  12. FOLPAN (CAMOSTAT MESILATE) [Concomitant]
  13. RINDERON-V (BETAMETHASONE VALERATE) [Concomitant]
  14. RABEPRAZOLE SODIUM [Concomitant]
  15. KANAMYCIN (KANAMYCIN SULFATE) [Concomitant]

REACTIONS (5)
  - ASTERIXIS [None]
  - WEIGHT DECREASED [None]
  - HEPATIC ENCEPHALOPATHY [None]
  - HEPATIC FAILURE [None]
  - HYPOVOLAEMIA [None]
